FAERS Safety Report 14048482 (Version 1)
Quarter: 2017Q4

REPORT INFORMATION
  Report Type: Spontaneous
  Country: FR (occurrence: FR)
  Receive Date: 20171005
  Receipt Date: 20171005
  Transmission Date: 20180321
  Serious: Yes (Other)
  Sender: FDA-Public Use
  Company Number: FR-ELI_LILLY_AND_COMPANY-FR201709009934

PATIENT
  Age: 83 Year
  Sex: Female

DRUGS (2)
  1. FORSTEO [Suspect]
     Active Substance: TERIPARATIDE
     Indication: OSTEOPOROSIS POSTMENOPAUSAL
     Dosage: UNK, DAILY
     Route: 058
     Dates: start: 201304, end: 201410
  2. APROVEL [Concomitant]
     Active Substance: IRBESARTAN
     Indication: HYPERTENSION
     Dosage: UNK, DAILY
     Route: 065

REACTIONS (6)
  - Dyskinesia oesophageal [Unknown]
  - Hiatus hernia [Unknown]
  - Cataract [Unknown]
  - Gastric mucosa erythema [Unknown]
  - Open angle glaucoma [Unknown]
  - Oesophageal achalasia [Unknown]

NARRATIVE: CASE EVENT DATE: 2014
